FAERS Safety Report 7941042-9 (Version None)
Quarter: 2011Q4

REPORT INFORMATION
  Report Type: 
  Country: None (occurrence: None)
  Receive Date: 20111128
  Receipt Date: 20111121
  Transmission Date: 20120403
  Serious: Yes (Hospitalization, Other)
  Sender: FDA-Public Use
  Company Number: US-JNJFOC-20110511662

PATIENT
  Sex: Male
  Weight: 82.56 kg

DRUGS (3)
  1. LISINOPRIL [Concomitant]
     Indication: BLOOD PRESSURE
     Route: 065
  2. LEVAQUIN [Suspect]
     Indication: BRONCHITIS
     Route: 048
     Dates: start: 20080401
  3. ANDROGEL [Concomitant]
     Indication: ASTHENIA
     Route: 065

REACTIONS (4)
  - EPICONDYLITIS [None]
  - TENOSYNOVITIS [None]
  - ROTATOR CUFF SYNDROME [None]
  - DEPRESSION [None]
